FAERS Safety Report 10134205 (Version 1)
Quarter: 2014Q2

REPORT INFORMATION
  Report Type: Spontaneous
  Country: US (occurrence: US)
  Receive Date: 20140428
  Receipt Date: 20140428
  Transmission Date: 20141212
  Serious: No
  Sender: FDA-Public Use
  Company Number: US-SANOFI-AVENTIS-2013SA077770

PATIENT
  Sex: Female

DRUGS (1)
  1. ALLEGRA 24 HOUR [Suspect]
     Route: 048

REACTIONS (2)
  - Somnolence [Unknown]
  - Drug hypersensitivity [Unknown]
